FAERS Safety Report 9326445 (Version 2)
Quarter: 2013Q3

REPORT INFORMATION
  Report Type: Spontaneous
  Country: JP (occurrence: JP)
  Receive Date: 20130604
  Receipt Date: 20130705
  Transmission Date: 20140515
  Serious: No
  Sender: FDA-Public Use
  Company Number: JP-ABBOTT-13P-087-1097185-00

PATIENT
  Age: 69 Year
  Sex: Male

DRUGS (7)
  1. HUMIRA [Suspect]
     Route: 058
  2. CYCLOSPORINE [Suspect]
  3. METHOTREXATE [Suspect]
  4. AZATHIOPRINE [Suspect]
  5. PREDNISOLONE [Concomitant]
     Indication: COGAN^S SYNDROME
  6. PREDNISOLONE [Concomitant]
     Dosage: NO LESS THAN 18.0 MG/DAY
  7. PREDNISOLONE [Concomitant]

REACTIONS (1)
  - Therapeutic response decreased [Unknown]
